FAERS Safety Report 11395330 (Version 1)
Quarter: 2015Q3

REPORT INFORMATION
  Report Type: Spontaneous
  Country: US (occurrence: None)
  Receive Date: 20150817
  Receipt Date: 20150817
  Transmission Date: 20151125
  Serious: Yes (Life-Threatening, Hospitalization)
  Sender: FDA-Public Use
  Company Number: None

PATIENT
  Age: 60 Year
  Sex: Male
  Weight: 73.48 kg

DRUGS (2)
  1. CALCIUM W/ VIT D3 [Concomitant]
  2. RECLAST [Suspect]
     Active Substance: ZOLEDRONIC ACID
     Indication: OSTEOPOROSIS
     Dosage: 1 DOSE ANNUAL INTO A VEIN
     Route: 042

REACTIONS (6)
  - Back pain [None]
  - Fatigue [None]
  - Exercise tolerance decreased [None]
  - Impaired work ability [None]
  - Peripheral swelling [None]
  - Adverse drug reaction [None]

NARRATIVE: CASE EVENT DATE: 20141224
